FAERS Safety Report 5005836-4 (Version None)
Quarter: 2006Q2

REPORT INFORMATION
  Report Type: 
  Country: None (occurrence: None)
  Receive Date: 20060517
  Receipt Date: 20060517
  Transmission Date: 20061013
  Serious: Yes (Hospitalization)
  Sender: FDA-Public Use
  Company Number: None

PATIENT
  Age: 61 Year
  Sex: Male

DRUGS (2)
  1. ZOMETA [Suspect]
     Indication: HYPERCALCAEMIA
     Dosage: 4MG    ONCE
  2. FOSINOPRIL SODIUM [Concomitant]

REACTIONS (1)
  - RENAL FAILURE ACUTE [None]
